FAERS Safety Report 10567705 (Version 1)
Quarter: 2014Q4

REPORT INFORMATION
  Report Type: Report from Study
  Country: US (occurrence: US)
  Receive Date: 20141106
  Receipt Date: 20141106
  Transmission Date: 20150529
  Serious: Yes (Hospitalization)
  Sender: FDA-Public Use
  Company Number: US-BIOGENIDEC-2014BI112165

PATIENT
  Age: 75 Year
  Sex: Female

DRUGS (16)
  1. OXYBUTYNIN [Concomitant]
     Active Substance: OXYBUTYNIN
  2. TURMERIC [Concomitant]
     Active Substance: TURMERIC
  3. AUBAGIO [Concomitant]
     Active Substance: TERIFLUNOMIDE
  4. CALCIUM [Concomitant]
     Active Substance: CALCIUM
  5. ATORVASTATIN [Concomitant]
     Active Substance: ATORVASTATIN
  6. VITAMIN B12 [Concomitant]
     Active Substance: CYANOCOBALAMIN
  7. OMEGA 3 [Concomitant]
     Active Substance: OMEGA-3 FATTY ACIDS
  8. ATENOLOL. [Concomitant]
     Active Substance: ATENOLOL
  9. COENZYME Q10 [Concomitant]
     Active Substance: UBIDECARENONE
  10. OMEPRAZOLE. [Concomitant]
     Active Substance: OMEPRAZOLE
  11. ESTRADIOL. [Concomitant]
     Active Substance: ESTRADIOL
  12. CIPRO [Concomitant]
     Active Substance: CIPROFLOXACIN HYDROCHLORIDE
  13. SERTRALINE [Concomitant]
     Active Substance: SERTRALINE HYDROCHLORIDE
  14. BACLOFEN. [Concomitant]
     Active Substance: BACLOFEN
  15. TECFIDERA [Suspect]
     Active Substance: DIMETHYL FUMARATE
     Indication: MULTIPLE SCLEROSIS
     Route: 048
     Dates: start: 20130523
  16. METHYLFENIDATE [Concomitant]

REACTIONS (5)
  - Pneumonia [Recovered/Resolved with Sequelae]
  - Gait disturbance [Not Recovered/Not Resolved]
  - Fall [Recovered/Resolved with Sequelae]
  - Cognitive disorder [Not Recovered/Not Resolved]
  - Asthenia [Not Recovered/Not Resolved]

NARRATIVE: CASE EVENT DATE: 20140630
